FAERS Safety Report 16251255 (Version 3)
Quarter: 2024Q4

REPORT INFORMATION
  Report Type: Spontaneous
  Country: IT (occurrence: IT)
  Receive Date: 20190429
  Receipt Date: 20241008
  Transmission Date: 20250114
  Serious: Yes (Disabling)
  Sender: MYLAN
  Company Number: IT-EMA-DD-20181119-FAIZAN_M-105843

PATIENT
  Age: 61 Year
  Sex: Male

DRUGS (9)
  1. ESCITALOPRAM [Suspect]
     Active Substance: ESCITALOPRAM OXALATE
     Indication: Bipolar disorder
     Dosage: UNK
     Route: 065
  2. SERTRALINE [Interacting]
     Active Substance: SERTRALINE HYDROCHLORIDE
     Indication: Bipolar disorder
     Dosage: 50 MILLIGRAM, QD
     Route: 065
     Dates: start: 201409
  3. SERTRALINE [Interacting]
     Active Substance: SERTRALINE HYDROCHLORIDE
     Indication: Anxiety
     Dosage: 200 MILLIGRAM, QD
     Route: 065
     Dates: start: 201409
  4. SERTRALINE [Interacting]
     Active Substance: SERTRALINE HYDROCHLORIDE
     Indication: Depression
     Dosage: 50 MILLIGRAM, QD, (GRADUALLY REDUCED BACK TO 50 MG/DAY)
     Route: 065
  5. VENLAFAXINE [Suspect]
     Active Substance: VENLAFAXINE HYDROCHLORIDE
     Indication: Bipolar disorder
     Dosage: UNK
     Route: 065
  6. MIRTAZAPINE [Interacting]
     Active Substance: MIRTAZAPINE
     Indication: Bipolar disorder
     Dosage: UNK, LOW DOSE
     Route: 065
     Dates: start: 201409
  7. MIRTAZAPINE [Interacting]
     Active Substance: MIRTAZAPINE
     Indication: Depression
  8. QUETIAPINE [Suspect]
     Active Substance: QUETIAPINE
     Indication: Bipolar disorder
     Dosage: UNK
     Route: 048
  9. VALPROIC ACID [Suspect]
     Active Substance: VALPROIC ACID
     Indication: Bipolar disorder
     Dosage: UNK
     Route: 065

REACTIONS (7)
  - Tremor [Recovered/Resolved]
  - Dysgraphia [Recovered/Resolved]
  - Dyskinesia [Recovered/Resolved]
  - Potentiating drug interaction [Recovered/Resolved]
  - Anxiety [Unknown]
  - Therapeutic product effect decreased [Unknown]
  - Off label use [Unknown]
